FAERS Safety Report 6330508-3 (Version None)
Quarter: 2009Q3

REPORT INFORMATION
  Report Type: 
  Country: None (occurrence: None)
  Receive Date: 20090827
  Receipt Date: 20090818
  Transmission Date: 20100115
  Serious: Yes (Other)
  Sender: FDA-Public Use
  Company Number: IE-CELGENEUS-229-20484-08101781

PATIENT
  Sex: Female

DRUGS (2)
  1. INNOHEP [Suspect]
     Indication: PROPHYLAXIS
     Route: 058
  2. ENOXAPARIN SODIUM [Concomitant]
     Indication: DRUG USE FOR UNKNOWN INDICATION
     Route: 065

REACTIONS (3)
  - FALL [None]
  - HUMERUS FRACTURE [None]
  - OSTEOPENIA [None]
